FAERS Safety Report 14252569 (Version 1)
Quarter: 2017Q4

REPORT INFORMATION
  Report Type: Spontaneous
  Country: DE (occurrence: DE)
  Receive Date: 20171205
  Receipt Date: 20171205
  Transmission Date: 20180321
  Serious: Yes (Other)
  Sender: FDA-Public Use
  Company Number: DE-PFIZER INC-2017515324

PATIENT
  Age: 43 Year
  Sex: Male
  Weight: 73 kg

DRUGS (28)
  1. MYLEPSINUM [Suspect]
     Active Substance: PRIMIDONE
     Dosage: 250 MG, 1X/DAY
     Dates: start: 199310, end: 199405
  2. RANITIDINE. [Interacting]
     Active Substance: RANITIDINE
     Dosage: UNK
  3. SODIUM VALPROATE [Concomitant]
     Active Substance: VALPROATE SODIUM
     Dosage: 900 MG, 1X/DAY
     Dates: start: 198407, end: 198608
  4. MYLEPSINUM [Suspect]
     Active Substance: PRIMIDONE
     Dosage: 312-500 MG, 1X/DAY
     Dates: start: 199101, end: 199111
  5. MYLEPSINUM [Suspect]
     Active Substance: PRIMIDONE
     Dosage: 250 MG, 1X/DAY
     Dates: start: 199405, end: 199812
  6. TEGRETAL [Interacting]
     Active Substance: CARBAMAZEPINE
     Dosage: 2000 MG, 1X/DAY
     Route: 048
     Dates: start: 199101, end: 199101
  7. SODIUM VALPROATE [Concomitant]
     Active Substance: VALPROATE SODIUM
     Dosage: 900-1350 MG, 1X/DAY
     Dates: start: 199001, end: 199110
  8. MYLEPSINUM [Suspect]
     Active Substance: PRIMIDONE
     Dosage: 250-312.5 MG, 1X/DAY
     Dates: start: 199307, end: 199310
  9. TEGRETAL [Interacting]
     Active Substance: CARBAMAZEPINE
     Dosage: 1800 MG, 1X/DAY
     Route: 048
     Dates: start: 199101
  10. MYLEPSINUM [Suspect]
     Active Substance: PRIMIDONE
     Indication: PARTIAL SEIZURES
     Dosage: 250-1000 MG, 1X/DAY
     Dates: start: 1981
  11. SODIUM VALPROATE [Concomitant]
     Active Substance: VALPROATE SODIUM
     Dosage: 1200-1500 MG, 1X/DAY
     Dates: start: 198609, end: 199001
  12. VIGABATRIN. [Concomitant]
     Active Substance: VIGABATRIN
     Dosage: 1750-2000 MG, 1X/DAY
     Dates: start: 199303, end: 199307
  13. MYLEPSINUM [Suspect]
     Active Substance: PRIMIDONE
     Indication: GENERALISED TONIC-CLONIC SEIZURE
     Dosage: UNK
  14. TEGRETAL [Interacting]
     Active Substance: CARBAMAZEPINE
     Dosage: 1800 TO 2000 MG ONCE A DAY
     Route: 048
     Dates: start: 199101, end: 199101
  15. SODIUM VALPROATE [Concomitant]
     Active Substance: VALPROATE SODIUM
     Indication: PARTIAL SEIZURES
     Dosage: 1000 MG, 1X/DAY
     Dates: start: 198401, end: 198406
  16. VALPROAT [Concomitant]
     Active Substance: VALPROATE SODIUM
     Indication: SEIZURE
     Dosage: 1200-1800 MG, 1X/DAY
     Dates: start: 199101, end: 199111
  17. TEGRETAL [Interacting]
     Active Substance: CARBAMAZEPINE
     Indication: EPILEPSY
     Dosage: 1600 MG, 1X/DAY
     Route: 048
  18. CARBAMAZEPINE. [Suspect]
     Active Substance: CARBAMAZEPINE
     Dosage: 1200-1400 MG, 1X/DAY
     Dates: start: 198607, end: 198608
  19. VIGABATRIN. [Concomitant]
     Active Substance: VIGABATRIN
     Dosage: 1750 MG, 1X/DAY
     Dates: start: 199307, end: 199310
  20. VIGABATRIN. [Concomitant]
     Active Substance: VIGABATRIN
     Dosage: 1000-1750 MG, 1X/DAY
     Dates: start: 199405, end: 199812
  21. GABAPENTIN. [Suspect]
     Active Substance: GABAPENTIN
     Indication: EPILEPSY
     Dosage: UNK
     Dates: start: 199902, end: 20150830
  22. MYLEPSINUM [Suspect]
     Active Substance: PRIMIDONE
     Dosage: 250 MG, 1X/DAY
     Dates: start: 199303, end: 199307
  23. CARBAMAZEPINE. [Suspect]
     Active Substance: CARBAMAZEPINE
     Indication: EPILEPSY
     Dosage: 600-1400 MG, 1X/DAY
     Dates: start: 198407, end: 198605
  24. VIGABATRIN. [Concomitant]
     Active Substance: VIGABATRIN
     Indication: SEIZURE
     Dosage: 1750 MG, 1X/DAY
     Dates: start: 199211, end: 199303
  25. GABAPENTIN. [Suspect]
     Active Substance: GABAPENTIN
     Indication: PARTIAL SEIZURES
  26. CARBAMAZEPINE. [Suspect]
     Active Substance: CARBAMAZEPINE
     Dosage: 1100-1200 MG, 1X/DAY
     Dates: start: 198609, end: 199001
  27. PHENYTOIN. [Concomitant]
     Active Substance: PHENYTOIN
     Indication: SEIZURE
     Dosage: 200-300 MG, 1X/DAY
     Dates: start: 199201, end: 199205
  28. MYLEPSINUM [Suspect]
     Active Substance: PRIMIDONE
     Dosage: 250 MG, 1X/DAY
     Dates: start: 199211, end: 199303

REACTIONS (25)
  - Drug interaction [Unknown]
  - Arthralgia [Unknown]
  - Gingival disorder [Not Recovered/Not Resolved]
  - Gingival atrophy [Unknown]
  - Cervicobrachial syndrome [Unknown]
  - Gastric ulcer [Recovered/Resolved]
  - Tooth disorder [Not Recovered/Not Resolved]
  - Musculoskeletal stiffness [Unknown]
  - Visual field defect [Unknown]
  - Overdose [Unknown]
  - Drug prescribing error [Unknown]
  - Nausea [Unknown]
  - Mental disorder [Unknown]
  - Open angle glaucoma [Recovering/Resolving]
  - Fatigue [Unknown]
  - Bone metabolism disorder [Not Recovered/Not Resolved]
  - Aggression [Unknown]
  - Oral pain [Unknown]
  - Sciatica [Unknown]
  - Epilepsy [Unknown]
  - Faeces soft [Unknown]
  - Jaw disorder [Unknown]
  - Decreased appetite [Unknown]
  - Condition aggravated [Not Recovered/Not Resolved]
  - Asthenia [Unknown]

NARRATIVE: CASE EVENT DATE: 199101
